FAERS Safety Report 6773627-X (Version None)
Quarter: 2010Q2

REPORT INFORMATION
  Report Type: 
  Country: None (occurrence: None)
  Receive Date: 20100614
  Receipt Date: 20100528
  Transmission Date: 20101027
  Serious: Yes (Other)
  Sender: FDA-Public Use
  Company Number: ACO_01048_2010

PATIENT
  Sex: Male

DRUGS (4)
  1. TIZANIDINE HCL [Suspect]
     Indication: MUSCLE RELAXANT THERAPY
     Dosage: (2 MG QD, HALF TABLET PER DAY)
     Dates: start: 20100525, end: 20100527
  2. ATENOLOL [Concomitant]
  3. OXYBUTYNIN CHLORIDE [Concomitant]
  4. PAROXETINE HCL [Concomitant]

REACTIONS (5)
  - DRUG HYPERSENSITIVITY [None]
  - ERYTHEMA [None]
  - NO THERAPEUTIC RESPONSE [None]
  - OEDEMA MOUTH [None]
  - URTICARIA [None]
